FAERS Safety Report 6806796-3 (Version None)
Quarter: 2010Q2

REPORT INFORMATION
  Report Type: 
  Country: None (occurrence: None)
  Receive Date: 20100629
  Receipt Date: 20080425
  Transmission Date: 20101027
  Serious: No
  Sender: FDA-Public Use
  Company Number: US-PFIZER INC-2008037208

PATIENT
  Sex: Female

DRUGS (3)
  1. CLEOCIN VAGINAL OVULES [Suspect]
     Indication: VAGINAL INFECTION
     Dosage: EVERY DAY
     Route: 067
     Dates: start: 20080424
  2. ZITHROMAX [Suspect]
     Indication: BRONCHITIS
     Dates: start: 20080101
  3. DRUG, UNSPECIFIED [Concomitant]

REACTIONS (2)
  - FEELING ABNORMAL [None]
  - VAGINAL INFECTION [None]
